FAERS Safety Report 17418611 (Version 1)
Quarter: 2020Q1

REPORT INFORMATION
  Report Type: Spontaneous
  Country: US (occurrence: US)
  Receive Date: 20200130
  Receipt Date: 20200130
  Transmission Date: 20200409
  Serious: No
  Sender: FDA-Public Use
  Company Number: None

PATIENT
  Age: 82 Year
  Sex: Male

DRUGS (1)
  1. SEMAGLUTIDE (SEMAGLUTIDE 0.5MG/0.375ML INJ, SOLN, PEN, 1.5,L) [Suspect]
     Active Substance: SEMAGLUTIDE
     Route: 058
     Dates: start: 20200102, end: 20200117

REACTIONS (2)
  - Pharyngeal swelling [None]
  - Throat irritation [None]

NARRATIVE: CASE EVENT DATE: 20200117
